FAERS Safety Report 8847990 (Version 1)
Quarter: 2012Q4

REPORT INFORMATION
  Report Type: 
  Country: US (occurrence: US)
  Receive Date: 20121018
  Receipt Date: 20121018
  Transmission Date: 20130627
  Serious: Yes (Other)
  Sender: FDA-Public Use
  Company Number: US-ROCHE-1140996

PATIENT
  Sex: Female
  Weight: 29 kg

DRUGS (4)
  1. PROTROPIN [Suspect]
     Indication: TURNER^S SYNDROME
     Route: 058
     Dates: start: 19921110
  2. PROTROPIN [Suspect]
     Indication: GONADAL DYSGENESIS
     Route: 058
     Dates: start: 19950614
  3. ESTINYL [Concomitant]
     Route: 065
  4. ESTINYL [Concomitant]
     Route: 065
     Dates: start: 19950614

REACTIONS (4)
  - Osteopenia [Unknown]
  - Genital discharge [Recovered/Resolved]
  - Sinusitis [Unknown]
  - Dyspepsia [Recovered/Resolved]
